FAERS Safety Report 5680635-9 (Version None)
Quarter: 2008Q1

REPORT INFORMATION
  Report Type: 
  Country: None (occurrence: None)
  Receive Date: 20080326
  Receipt Date: 20080102
  Transmission Date: 20080703
  Serious: No
  Sender: FDA-Public Use
  Company Number: A0701025A

PATIENT
  Age: 84 Year
  Sex: Male

DRUGS (12)
  1. FLOVENT [Suspect]
     Indication: ASTHMA
     Route: 055
     Dates: start: 20071127
  2. LEXAPRO [Concomitant]
  3. NORVASC [Concomitant]
  4. ACIPHEX [Concomitant]
  5. CRESTOR [Concomitant]
  6. DIPYRIDAMOLE [Concomitant]
  7. ASPIRIN [Concomitant]
  8. LUTEIN [Concomitant]
  9. FLAX OIL [Concomitant]
  10. FLOMAX [Concomitant]
  11. AMLODIPINE [Concomitant]
  12. OXYCODONE HCL [Concomitant]

REACTIONS (1)
  - THROAT TIGHTNESS [None]
